FAERS Safety Report 6842151-8 (Version None)
Quarter: 2010Q3

REPORT INFORMATION
  Report Type: 
  Country: None (occurrence: None)
  Receive Date: 20100714
  Receipt Date: 20070721
  Transmission Date: 20110219
  Serious: No
  Sender: FDA-Public Use
  Company Number: US-PFIZER INC-2007061973

PATIENT
  Sex: Female

DRUGS (2)
  1. CHANTIX [Suspect]
     Dates: start: 20070718
  2. ANALGESICS [Concomitant]
     Dates: start: 20070701

REACTIONS (3)
  - INSOMNIA [None]
  - SPEECH DISORDER [None]
  - THINKING ABNORMAL [None]
